FAERS Safety Report 20096116 (Version 3)
Quarter: 2022Q1

REPORT INFORMATION
  Report Type: Spontaneous
  Country: DE (occurrence: DE)
  Receive Date: 20211122
  Receipt Date: 20220212
  Transmission Date: 20220423
  Serious: Yes (Other)
  Sender: FDA-Public Use
  Company Number: None

PATIENT
  Sex: Female

DRUGS (9)
  1. DOCETAXEL [Suspect]
     Active Substance: DOCETAXEL
     Indication: Lung adenocarcinoma
     Dosage: RE-CHALLENGE, 75MG/M2, 2 CYCLES
     Dates: start: 20210204, end: 20210225
  2. DOCETAXEL [Suspect]
     Active Substance: DOCETAXEL
     Dosage: 2ND LINE, 6 CYCLES, 75MG/M2
     Dates: start: 20190704, end: 20191017
  3. PEMETREXED [Suspect]
     Active Substance: PEMETREXED
     Indication: Lung adenocarcinoma
     Dosage: 1ST LINE, 4 CYCLES
     Dates: start: 20190411, end: 20190613
  4. NINTEDANIB [Suspect]
     Active Substance: NINTEDANIB
     Indication: Lung adenocarcinoma
     Dosage: 2ND LINE, 2 X 150MG
     Dates: start: 20190906
  5. NINTEDANIB [Suspect]
     Active Substance: NINTEDANIB
     Dosage: 2ND LINE, DAY 2-21, 2 X 200MG
     Dates: start: 20190705, end: 20190904
  6. NINTEDANIB [Suspect]
     Active Substance: NINTEDANIB
     Dosage: UNK
     Dates: start: 20191018, end: 20210204
  7. PEMBROLIZUMAB [Suspect]
     Active Substance: PEMBROLIZUMAB
     Indication: Lung adenocarcinoma
     Dosage: 1ST LINE, 4 CYCLES
     Dates: start: 20190411, end: 20190613
  8. CARBOPLATIN [Suspect]
     Active Substance: CARBOPLATIN
     Indication: Lung adenocarcinoma
     Dosage: UNK UNK, CYCLICAL
     Dates: start: 20190411, end: 20190613
  9. DENOSUMAB [Concomitant]
     Active Substance: DENOSUMAB
     Indication: Lung adenocarcinoma
     Dosage: UNK
     Dates: start: 20190411

REACTIONS (4)
  - Malignant neoplasm progression [Unknown]
  - Diarrhoea [Unknown]
  - Nausea [Unknown]
  - Therapy partial responder [Unknown]

NARRATIVE: CASE EVENT DATE: 20190601
